FAERS Safety Report 14711550 (Version 1)
Quarter: 2018Q2

REPORT INFORMATION
  Report Type: Other
  Country: FR (occurrence: FR)
  Receive Date: 20180403
  Receipt Date: 20180403
  Transmission Date: 20180711
  Serious: Yes (Hospitalization)
  Sender: FDA-Public Use
  Company Number: FR-GEHC-2018CSU001227

PATIENT

DRUGS (15)
  1. GENTAMICINE PANPHARMA [Suspect]
     Active Substance: GENTAMICIN
     Indication: BACTERAEMIA
     Dosage: 249 MG, QD
     Route: 042
     Dates: start: 20171207, end: 20171208
  2. DOLIPRANE [Concomitant]
     Active Substance: ACETAMINOPHEN
  3. EUPANTOL [Concomitant]
     Active Substance: PANTOPRAZOLE SODIUM
  4. DEROXAT [Concomitant]
     Active Substance: PAROXETINE HYDROCHLORIDE
  5. CEFAZOLINE MYLAN [Suspect]
     Active Substance: CEFAZOLIN SODIUM
     Indication: BACTERAEMIA
     Route: 042
  6. TRIATEC                            /00885601/ [Suspect]
     Active Substance: RAMIPRIL
     Indication: PRODUCT USED FOR UNKNOWN INDICATION
     Route: 048
  7. CARDENSIEL [Concomitant]
     Active Substance: BISOPROLOL FUMARATE
  8. KARDEGIC [Concomitant]
     Active Substance: ASPIRIN DL-LYSINE
  9. OMNIPAQUE [Suspect]
     Active Substance: IOHEXOL
     Indication: PRODUCT USED FOR UNKNOWN INDICATION
     Dosage: 120 ML, SINGLE
     Route: 042
  10. LANTUS [Concomitant]
     Active Substance: INSULIN GLARGINE
  11. DIFFU K [Concomitant]
     Active Substance: POTASSIUM CHLORIDE
  12. PREVISCAN                          /00789001/ [Concomitant]
     Active Substance: FLUINDIONE
  13. TAHOR [Concomitant]
     Active Substance: ATORVASTATIN CALCIUM
  14. PEVARYL                            /00418501/ [Concomitant]
     Active Substance: ECONAZOLE NITRATE
  15. HUMALOG [Concomitant]
     Active Substance: INSULIN LISPRO

REACTIONS (2)
  - Acute kidney injury [Recovering/Resolving]
  - Overdose [Recovered/Resolved]

NARRATIVE: CASE EVENT DATE: 20171211
